FAERS Safety Report 12623404 (Version 1)
Quarter: 2016Q3

REPORT INFORMATION
  Report Type: Spontaneous
  Country: US (occurrence: US)
  Receive Date: 20160804
  Receipt Date: 20160804
  Transmission Date: 20161109
  Serious: No
  Sender: FDA-Public Use
  Company Number: US-CARDINAL HEALTH 414, LLC-1055890

PATIENT

DRUGS (1)
  1. SODIUM FLUORIDE F-18 [Suspect]
     Active Substance: SODIUM FLUORIDE F-18
     Indication: IMAGING PROCEDURE
     Route: 040
     Dates: start: 20150910, end: 20150910

REACTIONS (1)
  - Drug ineffective [Unknown]

NARRATIVE: CASE EVENT DATE: 20150910
